FAERS Safety Report 24636941 (Version 3)
Quarter: 2025Q1

REPORT INFORMATION
  Report Type: Report from Study
  Country: US (occurrence: US)
  Receive Date: 20241119
  Receipt Date: 20250107
  Transmission Date: 20250409
  Serious: Yes (Death, Other)
  Sender: SANOFI AVENTIS
  Company Number: US-SA-2024SA332435

PATIENT
  Age: 80 Year
  Sex: Male

DRUGS (9)
  1. DUPILUMAB [Suspect]
     Active Substance: DUPILUMAB
     Indication: Dermatitis atopic
     Route: 058
     Dates: start: 20210209, end: 20210209
  2. DUPILUMAB [Suspect]
     Active Substance: DUPILUMAB
     Dosage: 300 MG, QOW
     Route: 058
     Dates: start: 20210224, end: 20221031
  3. DUPILUMAB [Suspect]
     Active Substance: DUPILUMAB
     Route: 058
     Dates: start: 20240110, end: 20240110
  4. DUPILUMAB [Suspect]
     Active Substance: DUPILUMAB
     Dosage: 300 MG, QOW
     Route: 058
     Dates: start: 20240124, end: 20241106
  5. HYDROCHLOROTHIAZIDE [Concomitant]
     Active Substance: HYDROCHLOROTHIAZIDE
     Indication: Product used for unknown indication
  6. LOSARTAN [Concomitant]
     Active Substance: LOSARTAN
     Indication: Product used for unknown indication
  7. TRIAMCINOLONE [Concomitant]
     Active Substance: TRIAMCINOLONE
     Indication: Pruritus
     Route: 061
  8. FLUOCINONIDE [Concomitant]
     Active Substance: FLUOCINONIDE
     Indication: Pruritus
     Route: 061
  9. CLINDAMYCIN PHOSPHATE [Concomitant]
     Active Substance: CLINDAMYCIN PHOSPHATE
     Indication: Pruritus
     Route: 061

REACTIONS (2)
  - Myocardial infarction [Fatal]
  - Cardiac ventricular thrombosis [Fatal]
